FAERS Safety Report 5823695-4 (Version None)
Quarter: 2008Q3

REPORT INFORMATION
  Report Type: 
  Country: None (occurrence: None)
  Receive Date: 20080725
  Receipt Date: 20080714
  Transmission Date: 20090109
  Serious: Yes (Other)
  Sender: FDA-Public Use
  Company Number: US-PFIZER INC-2008045323

PATIENT
  Sex: Female
  Weight: 65.454 kg

DRUGS (5)
  1. FLAGYL [Suspect]
     Indication: GASTRITIS
     Dates: start: 20080329, end: 20080408
  2. DRUG, UNSPECIFIED [Concomitant]
  3. ANTIHYPERTENSIVES [Concomitant]
  4. PREMARIN [Concomitant]
  5. DRUG, UNSPECIFIED [Concomitant]

REACTIONS (2)
  - DEAFNESS [None]
  - DEAFNESS UNILATERAL [None]
